FAERS Safety Report 7729778-6 (Version None)
Quarter: 2011Q3

REPORT INFORMATION
  Report Type: 
  Country: None (occurrence: None)
  Receive Date: 20110906
  Receipt Date: 20110825
  Transmission Date: 20111222
  Serious: Yes (Life-Threatening, Hospitalization, Other)
  Sender: FDA-Public Use
  Company Number: CH-CELGENEUS-151-21880-09031219

PATIENT
  Age: 68 Year
  Sex: Female
  Weight: 61 kg

DRUGS (17)
  1. CALCIUM D3 SANDOZ [Concomitant]
     Route: 065
  2. VENTOLIN HFA [Concomitant]
     Dosage: 2 DROPS
     Route: 065
  3. CYCLOKAPRON [Concomitant]
     Dosage: 500 MILLIGRAM
     Route: 065
     Dates: end: 20090320
  4. LEVOTHYROXINE SODIUM [Concomitant]
     Dosage: 125 UNKNOWN
     Route: 065
  5. SODIUM CHLORIDE [Concomitant]
     Dosage: 2 ML
     Route: 065
  6. SPIRICORT [Concomitant]
     Dosage: 60 MILLIGRAM
     Route: 065
     Dates: end: 20090330
  7. REVLIMID [Suspect]
     Dosage: 10 MILLIGRAM
     Route: 048
     Dates: start: 20070101
  8. ZOMETA [Concomitant]
     Dosage: 4 MILLIGRAM
     Route: 041
  9. NEBIVOLOL HCL [Concomitant]
     Route: 065
  10. REVLIMID [Suspect]
     Dosage: 5 MILLIGRAM
     Route: 048
     Dates: start: 20080206
  11. SPIRICORT [Concomitant]
     Dosage: 50 MILLIGRAM
     Route: 065
     Dates: start: 20090331, end: 20090406
  12. LORAZEPAM [Concomitant]
     Route: 065
  13. SOLU-MEDROL [Concomitant]
     Dosage: 500 MILLIGRAM
  14. REVLIMID [Suspect]
     Dosage: 10 MILLIGRAM
     Route: 048
     Dates: start: 20090101
  15. NEUPOGEN [Suspect]
     Indication: NEUTROPENIA
     Route: 058
     Dates: start: 20090202
  16. SPIRICORT [Concomitant]
     Dosage: 40 MILLIGRAM
     Route: 065
     Dates: start: 20090407, end: 20090401
  17. REVLIMID [Suspect]
     Dosage: 10 MILLIGRAM
     Route: 048
     Dates: end: 20081101

REACTIONS (1)
  - PULMONARY ALVEOLAR HAEMORRHAGE [None]
